FAERS Safety Report 25166037 (Version 3)
Quarter: 2025Q3

REPORT INFORMATION
  Report Type: Report from Study
  Country: IN (occurrence: IN)
  Receive Date: 20250407
  Receipt Date: 20250803
  Transmission Date: 20251020
  Serious: Yes (Death)
  Sender: ALEXION PHARMACEUTICALS
  Company Number: IN-AstraZeneca-CH-00840513A

PATIENT
  Age: 65 Year
  Sex: Male
  Weight: 38 kg

DRUGS (2)
  1. DURVALUMAB [Suspect]
     Active Substance: DURVALUMAB
     Indication: Hepatocellular carcinoma
     Dosage: 120 MILLIGRAM, Q3W
     Dates: start: 20241113, end: 20241113
  2. PANTOPRAZOLE SODIUM [Concomitant]
     Active Substance: PANTOPRAZOLE SODIUM

REACTIONS (2)
  - Feeding disorder [Fatal]
  - Musculoskeletal discomfort [Fatal]

NARRATIVE: CASE EVENT DATE: 20250118
